FAERS Safety Report 9664427 (Version 4)
Quarter: 2014Q1

REPORT INFORMATION
  Report Type: Spontaneous
  Country: CH (occurrence: CH)
  Receive Date: 20131101
  Receipt Date: 20140110
  Transmission Date: 20141002
  Serious: Yes (Death)
  Sender: FDA-Public Use
  Company Number: CH-TEVA-427701ISR

PATIENT
  Sex: Female

DRUGS (4)
  1. GABAPENTIN-MEPHA (NEW FORMULATION) [Suspect]
     Indication: NEURALGIA
     Dosage: 100 MILLIGRAM DAILY; LAST DISPENSE AUG-2013
     Route: 048
     Dates: end: 2013
  2. GABAPENTIN-MEPHA (NEW FORMULATION) [Suspect]
     Dosage: 900 MILLIGRAM DAILY; GABAPENTIN-MEPHA (OLD FORMULATION) 9 X 100 MG IN THE EVENING
     Route: 048
  3. GABAPENTIN-MEPHA (OLD FORMULATION) [Suspect]
     Indication: NEURALGIA
     Dosage: 900 MILLIGRAM DAILY; 9 X 100 MG IN THE EVENING
     Route: 048
  4. NEURONTIN [Suspect]

REACTIONS (4)
  - Death [Fatal]
  - Dizziness [Recovering/Resolving]
  - Nausea [Recovering/Resolving]
  - Head injury [Unknown]
